FAERS Safety Report 6118880-0 (Version None)
Quarter: 2009Q1

REPORT INFORMATION
  Report Type: 
  Country: None (occurrence: None)
  Receive Date: 20090316
  Receipt Date: 20090311
  Transmission Date: 20090719
  Serious: Yes (Death)
  Sender: FDA-Public Use
  Company Number: CA-JNJFOC-20070105507

PATIENT
  Sex: Female
  Weight: 108.86 kg

DRUGS (6)
  1. DURAGESIC-100 [Suspect]
     Route: 062
  2. DURAGESIC-100 [Suspect]
     Indication: HEADACHE
     Route: 062
  3. DURAGESIC-100 [Suspect]
     Indication: PAIN
     Route: 062
  4. TYLENOL [Concomitant]
     Indication: DRUG USE FOR UNKNOWN INDICATION
     Dosage: 1-2 TABLETS UP TO 3 TIMES A DAY
  5. WELLBUTRIN [Concomitant]
     Indication: MENTAL DISORDER
     Route: 048
  6. TRAZODONE HCL [Concomitant]
     Indication: MENTAL DISORDER
     Route: 048

REACTIONS (8)
  - ACCIDENTAL OVERDOSE [None]
  - ACUTE PULMONARY OEDEMA [None]
  - ANALGESIC DRUG LEVEL ABOVE THERAPEUTIC [None]
  - APNOEA [None]
  - DEVICE LEAKAGE [None]
  - DRUG ABUSE [None]
  - PULMONARY CONGESTION [None]
  - ROAD TRAFFIC ACCIDENT [None]
